FAERS Safety Report 15900014 (Version 2)
Quarter: 2019Q1

REPORT INFORMATION
  Report Type: Spontaneous
  Country: US (occurrence: US)
  Receive Date: 20190201
  Receipt Date: 20190219
  Transmission Date: 20190417
  Serious: No
  Sender: FDA-Public Use
  Company Number: US-GLAXOSMITHKLINE-US2019013416

PATIENT
  Age: 84 Year
  Sex: Female

DRUGS (1)
  1. DICLOFENAC SODIUM GEL [Suspect]
     Active Substance: DICLOFENAC SODIUM
     Indication: ARTHRITIS
     Dosage: I PUT A SMALL AMOUNT
     Dates: start: 20190122, end: 20190122

REACTIONS (6)
  - Product complaint [Unknown]
  - Burning sensation [Unknown]
  - Off label use [Unknown]
  - Application site movement impairment [Unknown]
  - Product use issue [Unknown]
  - Underdose [Unknown]
